FAERS Safety Report 10905599 (Version 1)
Quarter: 2015Q1

REPORT INFORMATION
  Report Type: Spontaneous
  Country: US (occurrence: None)
  Receive Date: 20150309
  Receipt Date: 20150309
  Transmission Date: 20150721
  Serious: Yes (Other)
  Sender: FDA-Public Use
  Company Number: None

PATIENT
  Age: 48 Year
  Sex: Female
  Weight: 74.84 kg

DRUGS (4)
  1. MELATONIN [Concomitant]
     Active Substance: MELATONIN
  2. SINGULAIR [Suspect]
     Active Substance: MONTELUKAST SODIUM
     Indication: MULTIPLE ALLERGIES
     Route: 048
     Dates: start: 20150303, end: 20150307
  3. FISH OIL [Concomitant]
     Active Substance: FISH OIL
  4. WOMEN^S MULTI VITAMINS [Concomitant]

REACTIONS (1)
  - Depressed mood [None]

NARRATIVE: CASE EVENT DATE: 20150307
